FAERS Safety Report 7524984-8 (Version None)
Quarter: 2011Q2

REPORT INFORMATION
  Report Type: 
  Country: None (occurrence: None)
  Receive Date: 20110606
  Receipt Date: 20110527
  Transmission Date: 20111010
  Serious: Yes (Other)
  Sender: FDA-Public Use
  Company Number: ES-ASTELLAS-2011EU003243

PATIENT
  Age: 64 Year
  Sex: Male

DRUGS (1)
  1. VESICARE [Suspect]
     Indication: PROSTATIC ADENOMA
     Dosage: 5 MG, UID/QD
     Route: 048
     Dates: start: 20101101, end: 20101107

REACTIONS (1)
  - PALPITATIONS [None]
